FAERS Safety Report 6019532-8 (Version None)
Quarter: 2008Q4

REPORT INFORMATION
  Report Type: 
  Country: None (occurrence: None)
  Receive Date: 20081224
  Receipt Date: 20081219
  Transmission Date: 20090506
  Serious: Yes (Hospitalization)
  Sender: FDA-Public Use
  Company Number: FR-GILEAD-2008-0019587

PATIENT
  Age: 47 Year
  Sex: Male

DRUGS (6)
  1. TRUVADA [Suspect]
     Indication: HIV INFECTION
     Dates: start: 20070201
  2. SUSTIVA [Suspect]
     Indication: HIV INFECTION
     Dates: start: 20070201, end: 20070825
  3. AMLOD [Concomitant]
  4. ACEBUTOLOL [Concomitant]
  5. KARDEGIC [Concomitant]
  6. CRESTOR [Concomitant]

REACTIONS (2)
  - AGRANULOCYTOSIS [None]
  - FEBRILE BONE MARROW APLASIA [None]
